FAERS Safety Report 17837218 (Version 6)
Quarter: 2020Q3

REPORT INFORMATION
  Report Type: Spontaneous
  Country: US (occurrence: US)
  Receive Date: 20200528
  Receipt Date: 20200709
  Transmission Date: 20201103
  Serious: Yes (Hospitalization)
  Sender: FDA-Public Use
  Company Number: US-SEATTLE GENETICS-2020SGN02270

PATIENT
  Sex: Female

DRUGS (5)
  1. XELODA [Suspect]
     Active Substance: CAPECITABINE
     Indication: BREAST CANCER FEMALE
  2. AMBIEN [Concomitant]
     Active Substance: ZOLPIDEM TARTRATE
  3. TUKYSA [Suspect]
     Active Substance: TUCATINIB
     Indication: BREAST CANCER FEMALE
     Dosage: UNK, BID
  4. LOMOTIL [Suspect]
     Active Substance: ATROPINE SULFATE\DIPHENOXYLATE HYDROCHLORIDE
     Indication: DIARRHOEA
  5. ROCEPHIN [Concomitant]
     Active Substance: CEFTRIAXONE SODIUM
     Indication: URINARY TRACT INFECTION

REACTIONS (20)
  - Unevaluable event [Unknown]
  - Diarrhoea [Unknown]
  - Ocular icterus [Unknown]
  - Anxiety [Unknown]
  - Constipation [Unknown]
  - Abdominal distension [Unknown]
  - Skin laceration [Unknown]
  - Urinary tract infection [Unknown]
  - Confusional state [Recovered/Resolved]
  - Thrombosis [Unknown]
  - Decubitus ulcer [Unknown]
  - Irritability [Unknown]
  - Wound [Unknown]
  - Insomnia [Unknown]
  - Asthenia [Unknown]
  - Dehydration [Unknown]
  - Mouth ulceration [Unknown]
  - Dry mouth [Unknown]
  - Transfusion [Unknown]
  - Neuropathy peripheral [Unknown]
